FAERS Safety Report 22960188 (Version 3)
Quarter: 2023Q4

REPORT INFORMATION
  Report Type: Report from Study
  Country: US (occurrence: US)
  Receive Date: 20230920
  Receipt Date: 20231103
  Transmission Date: 20240110
  Serious: Yes (Hospitalization, Other)
  Sender: FDA-Public Use
  Company Number: US-UCBSA-2023045484

PATIENT
  Sex: Female

DRUGS (1)
  1. CERTOLIZUMAB PEGOL [Suspect]
     Active Substance: CERTOLIZUMAB PEGOL
     Indication: Rheumatoid arthritis
     Dosage: 200 MILLIGRAM
     Route: 058
     Dates: start: 20230627

REACTIONS (6)
  - Cellulitis [Not Recovered/Not Resolved]
  - Blood pressure decreased [Recovering/Resolving]
  - Localised infection [Recovering/Resolving]
  - Sepsis [Unknown]
  - Peripheral swelling [Unknown]
  - Vascular device infection [Unknown]

NARRATIVE: CASE EVENT DATE: 20230101
